FAERS Safety Report 6179928-0 (Version None)
Quarter: 2009Q2

REPORT INFORMATION
  Report Type: 
  Country: None (occurrence: None)
  Receive Date: 20090505
  Receipt Date: 20090427
  Transmission Date: 20091009
  Serious: Yes (Hospitalization, Other)
  Sender: FDA-Public Use
  Company Number: PHHY2009BR11178

PATIENT
  Sex: Female
  Weight: 71 kg

DRUGS (9)
  1. ACLASTA [Suspect]
     Indication: OSTEOPOROSIS
     Dosage: UNK
     Dates: start: 20070101
  2. ACLASTA [Suspect]
     Dosage: UNK
     Route: 042
     Dates: start: 20080101, end: 20081201
  3. ACLASTA [Suspect]
     Dosage: UNK
     Dates: start: 20090301, end: 20090301
  4. CONDROFLEX [Concomitant]
     Dosage: 1 SACHET A DAY
     Route: 048
     Dates: start: 20081101
  5. OSCAL [Concomitant]
     Indication: BONE DISORDER
     Dosage: 2 DF PER DAY
     Route: 048
     Dates: start: 20080901
  6. PARATRAM [Concomitant]
     Indication: PAIN
     Dosage: 1 DF, TID
     Route: 048
     Dates: start: 20090301
  7. MODURETIC 5-50 [Concomitant]
     Indication: HYPERTENSION
     Dosage: 1 TAB PER DAY
  8. GABAPENTIN [Concomitant]
     Dosage: 1 TAB PER DAY
     Route: 048
     Dates: start: 20090226
  9. SYNTHROID [Concomitant]
     Dosage: 100 UG PER DAY

REACTIONS (9)
  - BENIGN NEOPLASM OF THYROID GLAND [None]
  - BREAST MASS [None]
  - DIARRHOEA [None]
  - MASS [None]
  - PAIN IN EXTREMITY [None]
  - SOMNOLENCE [None]
  - THYROID CANCER [None]
  - THYROID OPERATION [None]
  - VOMITING [None]
